FAERS Safety Report 18155981 (Version 2)
Quarter: 2020Q3

REPORT INFORMATION
  Report Type: Report from Study
  Country: US (occurrence: US)
  Receive Date: 20200817
  Receipt Date: 20200820
  Transmission Date: 20201103
  Serious: Yes (Life-Threatening, Hospitalization, Other)
  Sender: FDA-Public Use
  Company Number: US-PFIZER INC-2020315052

PATIENT

DRUGS (1)
  1. RITUXIMAB. [Suspect]
     Active Substance: RITUXIMAB
     Indication: MULTIPLE SCLEROSIS
     Dosage: UNK (PRECONCEPTION) EVERY 6?12 MONTHS
     Route: 064

REACTIONS (4)
  - Foetal distress syndrome [Unknown]
  - Maternal exposure during pregnancy [Unknown]
  - Perinatal stroke [Unknown]
  - Seizure [Unknown]
